FAERS Safety Report 23895289 (Version 1)
Quarter: 2024Q2

REPORT INFORMATION
  Report Type: Spontaneous
  Country: JP (occurrence: JP)
  Receive Date: 20240524
  Receipt Date: 20240524
  Transmission Date: 20240716
  Serious: Yes (Life-Threatening, Hospitalization, Other)
  Sender: FDA-Public Use
  Company Number: JP-MLMSERVICE-20240509-PI048385-00169-1

PATIENT

DRUGS (4)
  1. METFORMIN [Suspect]
     Active Substance: METFORMIN HYDROCHLORIDE
     Indication: Diabetes mellitus
     Route: 065
  2. VOGLIBOSE [Suspect]
     Active Substance: VOGLIBOSE
     Indication: Diabetes mellitus
     Route: 065
  3. GLIMEPIRIDE [Suspect]
     Active Substance: GLIMEPIRIDE
     Indication: Diabetes mellitus
     Route: 065
  4. ANAGLIPTIN [Suspect]
     Active Substance: ANAGLIPTIN
     Indication: Diabetes mellitus
     Route: 065

REACTIONS (3)
  - Hypoglycaemic coma [Recovered/Resolved]
  - Eye movement disorder [Recovered/Resolved]
  - Hypoglycaemic encephalopathy [Recovered/Resolved]
